FAERS Safety Report 12744472 (Version 1)
Quarter: 2016Q3

REPORT INFORMATION
  Report Type: Spontaneous
  Country: US (occurrence: US)
  Receive Date: 20160914
  Receipt Date: 20160914
  Transmission Date: 20161109
  Serious: No
  Sender: FDA-Public Use
  Company Number: US-JAZZ-2016-US-009264

PATIENT
  Sex: Female

DRUGS (46)
  1. PYRIDIUM [Concomitant]
     Active Substance: PHENAZOPYRIDINE
  2. ZOLOFT [Concomitant]
     Active Substance: SERTRALINE HYDROCHLORIDE
  3. METFORMIN HCL [Concomitant]
     Active Substance: METFORMIN HYDROCHLORIDE
  4. NAPROXEN. [Concomitant]
     Active Substance: NAPROXEN
  5. VITAMIN C [Concomitant]
     Active Substance: ASCORBIC ACID
  6. BROMELAIN [Concomitant]
     Active Substance: BROMELAINS
  7. FLEXERIL [Concomitant]
     Active Substance: CYCLOBENZAPRINE HYDROCHLORIDE
  8. FIORINAL [Concomitant]
     Active Substance: ASPIRIN\BUTALBITAL\CAFFEINE
  9. SUDAFED [Concomitant]
     Active Substance: PSEUDOEPHEDRINE HYDROCHLORIDE
  10. XYZAL [Concomitant]
     Active Substance: LEVOCETIRIZINE DIHYDROCHLORIDE
  11. GABAPENTIN. [Concomitant]
     Active Substance: GABAPENTIN
  12. VITAMIN D3 [Concomitant]
     Active Substance: CHOLECALCIFEROL
  13. ALBUTEROL SULFATE. [Concomitant]
     Active Substance: ALBUTEROL SULFATE
  14. JANUVIA [Concomitant]
     Active Substance: SITAGLIPTIN PHOSPHATE
  15. TRIMETHOPRIM. [Concomitant]
     Active Substance: TRIMETHOPRIM
  16. ADVAIR HFA [Concomitant]
     Active Substance: FLUTICASONE PROPIONATE\SALMETEROL XINAFOATE
  17. FERRALET [Concomitant]
  18. LASIX [Concomitant]
     Active Substance: FUROSEMIDE
  19. XYREM [Suspect]
     Active Substance: SODIUM OXYBATE
     Indication: NARCOLEPSY
     Dosage: 4.5 G, BID
     Route: 048
     Dates: start: 201504
  20. ZOLOFT [Concomitant]
     Active Substance: SERTRALINE HYDROCHLORIDE
  21. AMBIEN [Concomitant]
     Active Substance: ZOLPIDEM TARTRATE
  22. LAMICTAL [Concomitant]
     Active Substance: LAMOTRIGINE
  23. MUCINEX D [Concomitant]
     Active Substance: GUAIFENESIN\PSEUDOEPHEDRINE HYDROCHLORIDE
  24. MUCINEX D [Concomitant]
     Active Substance: GUAIFENESIN\PSEUDOEPHEDRINE HYDROCHLORIDE
  25. ZYRTEC [Concomitant]
     Active Substance: CETIRIZINE HYDROCHLORIDE
  26. IBUPROFEN. [Concomitant]
     Active Substance: IBUPROFEN
  27. VENTOLIN HFA [Concomitant]
     Active Substance: ALBUTEROL SULFATE
  28. JANUVIA [Concomitant]
     Active Substance: SITAGLIPTIN PHOSPHATE
  29. ADVAIR HFA [Concomitant]
     Active Substance: FLUTICASONE PROPIONATE\SALMETEROL XINAFOATE
  30. VENTOLIN HFA [Concomitant]
     Active Substance: ALBUTEROL SULFATE
  31. NORCO [Concomitant]
     Active Substance: ACETAMINOPHEN\HYDROCODONE BITARTRATE
  32. ADDERALL [Concomitant]
     Active Substance: AMPHETAMINE ASPARTATE\AMPHETAMINE SULFATE\DEXTROAMPHETAMINE SACCHARATE\DEXTROAMPHETAMINE SULFATE
  33. NEURONTIN [Concomitant]
     Active Substance: GABAPENTIN
  34. DIOVAN HCT [Concomitant]
     Active Substance: HYDROCHLOROTHIAZIDE\VALSARTAN
  35. BENADRYL ALLERGY [Concomitant]
     Active Substance: DIPHENHYDRAMINE HYDROCHLORIDE
  36. TYLENOL EXTRA STRENGTH [Concomitant]
     Active Substance: ACETAMINOPHEN
  37. XYREM [Suspect]
     Active Substance: SODIUM OXYBATE
     Indication: CATAPLEXY
  38. CYMBALTA [Concomitant]
     Active Substance: DULOXETINE HYDROCHLORIDE
  39. RHINOCORT [Concomitant]
     Active Substance: BUDESONIDE
  40. NASACORT [Concomitant]
     Active Substance: TRIAMCINOLONE ACETONIDE
  41. VOLTAREN [Concomitant]
     Active Substance: DICLOFENAC SODIUM
  42. FLONASE [Concomitant]
     Active Substance: FLUTICASONE PROPIONATE
  43. ZADITOR [Concomitant]
     Active Substance: KETOTIFEN FUMARATE
  44. ZANAFLEX [Concomitant]
     Active Substance: TIZANIDINE HYDROCHLORIDE
  45. ATIVAN [Concomitant]
     Active Substance: LORAZEPAM
  46. SINGULAIR [Concomitant]
     Active Substance: MONTELUKAST SODIUM

REACTIONS (1)
  - Migraine [Not Recovered/Not Resolved]
